FAERS Safety Report 4852207-7 (Version None)
Quarter: 2005Q4

REPORT INFORMATION
  Report Type: 
  Country: None (occurrence: None)
  Receive Date: 20051213
  Receipt Date: 20051205
  Transmission Date: 20060501
  Serious: Yes (Hospitalization)
  Sender: FDA-Public Use
  Company Number: NL-GLAXOSMITHKLINE-B0403026A

PATIENT
  Age: 70 Year
  Sex: Male

DRUGS (5)
  1. CEFUROXIME SODIUM [Suspect]
     Dates: start: 20050101
  2. GENTAMICIN [Concomitant]
  3. PREDNISOLONE [Concomitant]
     Dosage: 80MG PER DAY
     Dates: start: 20051111
  4. FOSAMAX [Concomitant]
     Dosage: 70MG PER DAY
     Dates: start: 20051113
  5. PANTOZOL [Concomitant]
     Dosage: 40MG PER DAY
     Dates: start: 20051111

REACTIONS (4)
  - AGEUSIA [None]
  - DYSGEUSIA [None]
  - INFECTION [None]
  - SHOCK [None]
